FAERS Safety Report 14418774 (Version 2)
Quarter: 2018Q1

REPORT INFORMATION
  Report Type: Spontaneous
  Country: SE (occurrence: SE)
  Receive Date: 20180122
  Receipt Date: 20180205
  Transmission Date: 20180509
  Serious: Yes (Death, Life-Threatening, Hospitalization)
  Sender: FDA-Public Use
  Company Number: SE-TEVA-2018-SE-848050

PATIENT
  Age: 91 Year
  Sex: Female

DRUGS (9)
  1. RISPERIDONE. [Suspect]
     Active Substance: RISPERIDONE
     Dosage: 0.25-0.5 MG
     Route: 065
  2. CIRCADIN [Concomitant]
     Active Substance: MELATONIN
  3. HEMINEVRIN [Concomitant]
     Active Substance: CLOMETHIAZOLE
  4. CANDESARTAN. [Concomitant]
     Active Substance: CANDESARTAN
  5. BEHEPAN [Concomitant]
     Active Substance: HYDROXOCOBALAMIN
  6. CILAXORAL [Concomitant]
     Active Substance: SODIUM PICOSULFATE
  7. CLOMETHIAZOLE [Concomitant]
     Active Substance: CLOMETHIAZOLE
  8. OXASCAND 5 MG TABLETT [Concomitant]
     Active Substance: OXAZEPAM
  9. KALCIPOS-D FORTE [Concomitant]
     Active Substance: CALCIUM CARBONATE\CHOLECALCIFEROL

REACTIONS (1)
  - Cerebrovascular accident [Fatal]

NARRATIVE: CASE EVENT DATE: 20171029
